FAERS Safety Report 6753536-2 (Version None)
Quarter: 2010Q2

REPORT INFORMATION
  Report Type: 
  Country: None (occurrence: None)
  Receive Date: 20100528
  Receipt Date: 20100512
  Transmission Date: 20101027
  Serious: Yes (Hospitalization)
  Sender: FDA-Public Use
  Company Number: 1-22597035

PATIENT
  Age: 65 Year
  Sex: Female

DRUGS (6)
  1. LEVETIRACETAM [Suspect]
     Indication: EPILEPSY
     Dosage: 750 MG TWICE DAILY, ORAL
     Route: 048
  2. PAROXETINE HCL [Suspect]
     Indication: DEPRESSION
     Dosage: 10 MG DAILY, ORAL
     Route: 048
  3. DEXAMETHASONE [Concomitant]
  4. MANNITOL [Concomitant]
  5. CEFAZOLIN [Concomitant]
  6. ENOXAPARIN SODIUM [Concomitant]

REACTIONS (12)
  - ABDOMINAL PAIN [None]
  - BACTERIAL TEST POSITIVE [None]
  - BILE DUCT STONE [None]
  - BILIARY DILATATION [None]
  - BONE MARROW FAILURE [None]
  - BONE MARROW TOXICITY [None]
  - BRONCHOPNEUMONIA [None]
  - CHOLELITHIASIS [None]
  - DRUG INTERACTION [None]
  - EPILEPSY [None]
  - LIVER ABSCESS [None]
  - VOMITING [None]
